FAERS Safety Report 5719452-X (Version None)
Quarter: 2008Q2

REPORT INFORMATION
  Report Type: 
  Country: None (occurrence: None)
  Receive Date: 20080428
  Receipt Date: 20080415
  Transmission Date: 20081010
  Serious: Yes (Death, Life-Threatening, Hospitalization)
  Sender: FDA-Public Use
  Company Number: DE-AMGEN-US275128

PATIENT
  Sex: Male
  Weight: 77 kg

DRUGS (3)
  1. ENBREL [Suspect]
     Indication: ANKYLOSING SPONDYLITIS
     Dosage: LYOPHILIZED, 50 MG WEEKLY
     Route: 058
     Dates: start: 20051201
  2. PREDNISOLONE [Suspect]
     Indication: DRUG USE FOR UNKNOWN INDICATION
     Route: 048
     Dates: start: 20070901
  3. PIROXICAM [Concomitant]
     Dosage: ONE TIME WEEKLY WHEN NEEDED
     Route: 048

REACTIONS (12)
  - ALCOHOL WITHDRAWAL SYNDROME [None]
  - ATRIAL FIBRILLATION [None]
  - CANDIDA SEPSIS [None]
  - CONTINUOUS HAEMODIAFILTRATION [None]
  - GASTRIC ULCER PERFORATION [None]
  - MULTI-ORGAN FAILURE [None]
  - PERITONITIS [None]
  - RENAL FAILURE ACUTE [None]
  - RESPIRATORY FAILURE [None]
  - STREPTOCOCCAL INFECTION [None]
  - SUTURE RELATED COMPLICATION [None]
  - SYSTEMIC INFLAMMATORY RESPONSE SYNDROME [None]
